FAERS Safety Report 8811737 (Version 1)
Quarter: 2012Q4

REPORT INFORMATION
  Report Type: Spontaneous
  Country: US (occurrence: None)
  Receive Date: 20120925
  Receipt Date: 20120925
  Transmission Date: 20130627
  Serious: No
  Sender: FDA-Public Use
  Company Number: None

PATIENT
  Age: 62 Year
  Sex: Female
  Weight: 90.72 kg

DRUGS (1)
  1. CLOZAPINE [Suspect]
     Dosage: 150 mg hs po
     Route: 048

REACTIONS (2)
  - White blood cell count decreased [None]
  - Neutrophil count decreased [None]
